FAERS Safety Report 17916941 (Version 1)
Quarter: 2020Q2

REPORT INFORMATION
  Report Type: Spontaneous
  Country: US (occurrence: US)
  Receive Date: 20200619
  Receipt Date: 20200619
  Transmission Date: 20200714
  Serious: No
  Sender: FDA-Public Use
  Company Number: None

PATIENT
  Age: 30 Year
  Sex: Male

DRUGS (7)
  1. CALCIUM 1200MG [Concomitant]
  2. IBUPROFEN 200MG [Concomitant]
     Active Substance: IBUPROFEN
  3. VITAMIN D 50,000IU [Concomitant]
  4. ALENDRONATE 70MG [Concomitant]
     Active Substance: ALENDRONATE SODIUM
  5. FERROUS SULFATE 325MG [Concomitant]
     Active Substance: FERROUS SULFATE
  6. ENDARI [Suspect]
     Active Substance: GLUTAMINE
     Indication: SICKLE CELL DISEASE
     Route: 048
     Dates: start: 20200505
  7. HYDROMORPHONE 2MG [Concomitant]

REACTIONS (2)
  - Abdominal pain upper [None]
  - Diarrhoea [None]

NARRATIVE: CASE EVENT DATE: 20200506
